FAERS Safety Report 5731484-4 (Version None)
Quarter: 2008Q2

REPORT INFORMATION
  Report Type: 
  Country: None (occurrence: None)
  Receive Date: 20080508
  Receipt Date: 20080505
  Transmission Date: 20081010
  Serious: Yes (Hospitalization, Other)
  Sender: FDA-Public Use
  Company Number: PHEH2008US03890

PATIENT
  Sex: Female

DRUGS (1)
  1. TRILEPTAL [Suspect]
     Indication: EPILEPSY
     Dosage: 900 MG, UNK
     Route: 048

REACTIONS (8)
  - ANAEMIA [None]
  - CATHETERISATION VENOUS [None]
  - CONDITION AGGRAVATED [None]
  - EATING DISORDER [None]
  - HYPOGLYCAEMIA [None]
  - IRON DEFICIENCY [None]
  - TREMOR [None]
  - WEIGHT INCREASED [None]
